FAERS Safety Report 13287991 (Version 3)
Quarter: 2019Q1

REPORT INFORMATION
  Report Type: Report from Study
  Country: US (occurrence: CA)
  Receive Date: 20170302
  Receipt Date: 20190228
  Transmission Date: 20190417
  Serious: Yes (Hospitalization, Other)
  Sender: FDA-Public Use
  Company Number: US-SUNOVION-2017SUN000908

PATIENT
  Sex: Male

DRUGS (5)
  1. AERIUS [Concomitant]
     Dosage: UNK
  2. SINGULAIR [Concomitant]
     Active Substance: MONTELUKAST SODIUM
     Dosage: UNK
  3. SYMBICORT [Concomitant]
     Active Substance: BUDESONIDE\FORMOTEROL FUMARATE DIHYDRATE
     Dosage: UNK
  4. XOLAIR [Suspect]
     Active Substance: OMALIZUMAB
     Indication: ASTHMA
     Dosage: 300 MG, EVERY 4 WEEKS
     Route: 058
     Dates: start: 20110707
  5. GLYCOPYRROLATE. [Suspect]
     Active Substance: GLYCOPYRROLATE
     Indication: PRODUCT USED FOR UNKNOWN INDICATION
     Dosage: UNK
     Route: 055

REACTIONS (12)
  - Hepatitis [Unknown]
  - Viral infection [Unknown]
  - Ear infection [Unknown]
  - Rhinorrhoea [Unknown]
  - Sneezing [Unknown]
  - General physical health deterioration [Unknown]
  - Cardiac disorder [Unknown]
  - Otorrhoea [Unknown]
  - Renal disorder [Unknown]
  - Hypersensitivity [Unknown]
  - Deafness [Unknown]
  - Liver disorder [Unknown]

NARRATIVE: CASE EVENT DATE: 2015
